FAERS Safety Report 24759371 (Version 1)
Quarter: 2024Q4

REPORT INFORMATION
  Report Type: Spontaneous
  Country: US (occurrence: US)
  Receive Date: 20241220
  Receipt Date: 20241220
  Transmission Date: 20250114
  Serious: Yes (Other)
  Sender: RANBAXY
  Company Number: US-SUN PHARMACEUTICAL INDUSTRIES LTD-2024R1-485403

PATIENT
  Sex: Female

DRUGS (3)
  1. DIGOXIN [Suspect]
     Active Substance: DIGOXIN
     Indication: Tachycardia
     Dosage: 125 MICROGRAM
     Route: 065
  2. HEPARIN [Suspect]
     Active Substance: HEPARIN SODIUM
     Indication: Left ventricular dysfunction
     Dosage: UNK
     Route: 042
  3. MILRINONE [Suspect]
     Active Substance: MILRINONE
     Indication: Left ventricular dysfunction
     Dosage: UNK
     Route: 065

REACTIONS (1)
  - Disease recurrence [Unknown]
